FAERS Safety Report 22317709 (Version 2)
Quarter: 2023Q2

REPORT INFORMATION
  Report Type: Spontaneous
  Country: KW (occurrence: KW)
  Receive Date: 20230515
  Receipt Date: 20230601
  Transmission Date: 20230722
  Serious: Yes (Other)
  Sender: FDA-Public Use
  Company Number: KW-BEH-2023158523

PATIENT
  Age: 10 Month
  Sex: Female
  Weight: 8 kg

DRUGS (2)
  1. PRIVIGEN [Suspect]
     Active Substance: HUMAN IMMUNOGLOBULIN G
     Indication: Immune thrombocytopenia
     Dosage: 8 GRAM, SINGLE
     Route: 065
     Dates: start: 20230424, end: 20230424
  2. BLOOD PLATELETS [Concomitant]
     Dosage: 8,000

REACTIONS (1)
  - Thrombocytosis [Unknown]

NARRATIVE: CASE EVENT DATE: 20230401
